FAERS Safety Report 9643407 (Version 1)
Quarter: 2013Q4

REPORT INFORMATION
  Report Type: Spontaneous
  Country: US (occurrence: US)
  Receive Date: 20131024
  Receipt Date: 20131024
  Transmission Date: 20140711
  Serious: No
  Sender: FDA-Public Use
  Company Number: US-BAYER-2013-129523

PATIENT
  Age: 70 Year
  Sex: Male
  Weight: 93 kg

DRUGS (3)
  1. ALEVE CAPLET [Suspect]
     Indication: ARTHRITIS
     Dosage: 1 DF, PRN
     Route: 048
     Dates: start: 20131021
  2. ASPIRIN [Concomitant]
     Dosage: UNK
  3. FLAX SEED OIL [Concomitant]

REACTIONS (1)
  - Diarrhoea [Not Recovered/Not Resolved]
